FAERS Safety Report 20990827 (Version 3)
Quarter: 2023Q1

REPORT INFORMATION
  Report Type: Spontaneous
  Country: TR (occurrence: TR)
  Receive Date: 20220622
  Receipt Date: 20230328
  Transmission Date: 20230417
  Serious: Yes (Life-Threatening, Hospitalization, Other)
  Sender: FDA-Public Use
  Company Number: TR-CELGENE-TUR-20211207377

PATIENT
  Age: 72 Year
  Sex: Male
  Weight: 75 kg

DRUGS (41)
  1. AZACITIDINE [Suspect]
     Active Substance: AZACITIDINE
     Indication: Myelodysplastic syndrome
     Dosage: DOSE: 75 MG/SQ.M.
     Route: 058
     Dates: start: 20210426, end: 20211217
  2. VENETOCLAX [Suspect]
     Active Substance: VENETOCLAX
     Indication: Myelodysplastic syndrome
     Dosage: 400 MILLIGRAM
     Dates: start: 20210426, end: 20211219
  3. ACETAMINOPHEN [Suspect]
     Active Substance: ACETAMINOPHEN
     Indication: Febrile neutropenia
     Dates: start: 20211124, end: 20211130
  4. ACETAMINOPHEN [Suspect]
     Active Substance: ACETAMINOPHEN
     Dates: start: 20211217, end: 20211217
  5. VALTREX [Concomitant]
     Active Substance: VALACYCLOVIR HYDROCHLORIDE
     Indication: Infection prophylaxis
     Route: 048
  6. VALTREX [Concomitant]
     Active Substance: VALACYCLOVIR HYDROCHLORIDE
     Dosage: 500 MILLIGRAM
     Route: 037
     Dates: start: 20210426
  7. VALTREX [Concomitant]
     Active Substance: VALACYCLOVIR HYDROCHLORIDE
     Dosage: FREQUENCY TEXT: NOT PROVIDED
     Route: 048
  8. INSPRA [Concomitant]
     Active Substance: EPLERENONE
     Indication: Myocardial infarction
     Dosage: 1 IN 1 D
     Route: 048
  9. INSPRA [Concomitant]
     Active Substance: EPLERENONE
     Dosage: 1 IN 1 D
     Route: 048
     Dates: start: 20210410
  10. INSPRA [Concomitant]
     Active Substance: EPLERENONE
     Dosage: 1 IN 1 D
     Route: 048
     Dates: start: 20211101
  11. TROMOSEL [Concomitant]
     Indication: Febrile neutropenia
     Dosage: 1 IN 1 D
     Route: 042
     Dates: start: 20211124
  12. CALBICOR [Concomitant]
     Indication: Myocardial infarction
     Dosage: 1 IN 1 D
     Route: 048
     Dates: start: 20191130
  13. CALBICOR [Concomitant]
     Dosage: .5 MILLIGRAM
     Route: 048
     Dates: start: 20211130
  14. ALFUZOSIN [Concomitant]
     Active Substance: ALFUZOSIN
     Indication: Micturition urgency
     Dosage: 2 IN 1 D
     Route: 048
     Dates: start: 20211206, end: 20211228
  15. PROCAIN [Concomitant]
     Indication: Febrile neutropenia
     Dosage: 1 IN 1 D
     Route: 042
     Dates: start: 20211217
  16. GERALGINE-K [Concomitant]
     Indication: Febrile neutropenia
     Dosage: 1 IN 1 D
     Route: 048
     Dates: start: 20211124
  17. LEVMONT TB [Concomitant]
     Indication: Anti-infective therapy
     Dosage: DOSE: 5/10 MG 1 IN 1 D
     Route: 048
     Dates: start: 20211125, end: 20211225
  18. CARVEDILOL [Concomitant]
     Active Substance: CARVEDILOL
     Indication: Myocardial infarction
     Dosage: 6250 MILLIGRAM
     Route: 048
     Dates: start: 20210410
  19. DIGOXIN [Concomitant]
     Active Substance: DIGOXIN
     Indication: Myocardial infarction
     Route: 048
     Dates: start: 20210410
  20. EPLERENONE [Concomitant]
     Active Substance: EPLERENONE
     Indication: Myocardial infarction
     Dosage: 25 MILLIGRAM
     Route: 048
     Dates: start: 20210410
  21. EPLERENONE [Concomitant]
     Active Substance: EPLERENONE
     Dosage: 25 MILLIGRAM
     Route: 048
     Dates: start: 20200801, end: 20200901
  22. PANTOPRAZOLE [Concomitant]
     Active Substance: PANTOPRAZOLE
     Indication: Gastritis prophylaxis
     Dosage: 40 MILLIGRAM
     Route: 048
     Dates: start: 20210410
  23. AMOXICILLIN TRIHYDRATE [Concomitant]
     Active Substance: AMOXICILLIN
     Indication: Sepsis
     Dosage: 500 MILLIGRAM
     Route: 042
     Dates: start: 20210927
  24. DAPTOMYCIN [Concomitant]
     Active Substance: DAPTOMYCIN
     Indication: Sepsis
     Dosage: 500 MILLIGRAM
     Route: 042
     Dates: start: 20210930
  25. GRANISETRON [Concomitant]
     Active Substance: GRANISETRON
     Indication: Premedication
     Route: 042
     Dates: start: 20210426
  26. VORICONAZOLE [Concomitant]
     Active Substance: VORICONAZOLE
     Indication: Bronchopulmonary aspergillosis
     Dosage: 200 MILLIGRAM
     Route: 048
     Dates: start: 20211025
  27. GLYCOSAMINOGLYCANS [Concomitant]
     Active Substance: GLYCOSAMINOGLYCANS
     Indication: Haemorrhage
     Route: 061
     Dates: start: 20210820
  28. LENOGRASTIM [Concomitant]
     Active Substance: LENOGRASTIM
     Indication: Premedication
     Route: 042
     Dates: start: 20210910
  29. UREA [Concomitant]
     Active Substance: UREA
     Indication: Rash
     Dosage: 8 MILLIGRAM
     Route: 061
     Dates: start: 20210910
  30. UREA [Concomitant]
     Active Substance: UREA
     Dosage: .02 MILLIGRAM
     Route: 061
     Dates: start: 20211125
  31. FUROSEMIDE [Concomitant]
     Active Substance: FUROSEMIDE
     Indication: Neutropenia
     Dates: start: 20210910
  32. TRAMADOL [Concomitant]
     Active Substance: TRAMADOL
     Indication: Febrile neutropenia
     Route: 042
     Dates: start: 20211124
  33. DEFERASIROX [Concomitant]
     Active Substance: DEFERASIROX
     Indication: Anti-infective therapy
     Dosage: 500 MILLIGRAM
     Route: 048
     Dates: start: 20211125
  34. DICLOFENAC [Concomitant]
     Active Substance: DICLOFENAC
     Indication: Myalgia
     Route: 061
     Dates: start: 20211128
  35. NAPROXEN [Concomitant]
     Active Substance: NAPROXEN
     Indication: Myalgia
     Route: 061
     Dates: start: 20211129, end: 20211228
  36. BUTAMIRATE CITRATE [Concomitant]
     Active Substance: BUTAMIRATE CITRATE
     Indication: Febrile neutropenia
     Dosage: 15 MILLIGRAM
     Route: 049
     Dates: start: 20211204
  37. ALFUZOSIN [Concomitant]
     Active Substance: ALFUZOSIN
     Indication: Urinary tract disorder
     Route: 048
     Dates: start: 20211206
  38. PROCAINE HYDROCHLORIDE [Concomitant]
     Active Substance: PROCAINE HYDROCHLORIDE
     Indication: Febrile neutropenia
     Dosage: 10 MILLIGRAM
     Route: 042
     Dates: start: 20211217
  39. ACETAMINOPHEN\CAFFEINE\CODEINE PHOSPHATE [Concomitant]
     Active Substance: ACETAMINOPHEN\CAFFEINE\CODEINE PHOSPHATE
     Indication: Febrile neutropenia
     Dosage: 500 MILLIGRAM
     Route: 048
     Dates: start: 20211124
  40. LEVOCETIRIZINE DIHYDROCHLORIDE\MONTELUKAST SODIUM [Concomitant]
     Active Substance: LEVOCETIRIZINE DIHYDROCHLORIDE\MONTELUKAST SODIUM
     Indication: Antifungal prophylaxis
     Dosage: 5 MILLIGRAM
     Route: 048
     Dates: start: 20211125
  41. LEVOCETIRIZINE DIHYDROCHLORIDE\MONTELUKAST SODIUM [Concomitant]
     Active Substance: LEVOCETIRIZINE DIHYDROCHLORIDE\MONTELUKAST SODIUM
     Dosage: 10 MILLIGRAM
     Route: 048

REACTIONS (3)
  - Neutropenic sepsis [Recovered/Resolved]
  - Escherichia sepsis [Recovered/Resolved]
  - Oedema [Unknown]

NARRATIVE: CASE EVENT DATE: 20211219
